FAERS Safety Report 12843415 (Version 1)
Quarter: 2016Q4

REPORT INFORMATION
  Report Type: Spontaneous
  Country: US (occurrence: US)
  Receive Date: 20161013
  Receipt Date: 20161013
  Transmission Date: 20170207
  Serious: No
  Sender: FDA-Public Use
  Company Number: None

PATIENT
  Age: 63 Year
  Sex: Female

DRUGS (3)
  1. ESTRING [Suspect]
     Active Substance: ESTRADIOL
     Indication: DYSPAREUNIA
     Dosage: 1 RING INSERT 1 RING VAGINALLY Q 3 MONTHS VAGINAL INSERTION
     Route: 067
     Dates: start: 20140721, end: 20160901
  2. PAROXETINE. [Concomitant]
     Active Substance: PAROXETINE
  3. ESTRING [Suspect]
     Active Substance: ESTRADIOL
     Indication: VULVOVAGINAL DRYNESS
     Dosage: 1 RING INSERT 1 RING VAGINALLY Q 3 MONTHS VAGINAL INSERTION
     Route: 067
     Dates: start: 20140721, end: 20160901

REACTIONS (3)
  - Vulvovaginal pruritus [None]
  - Vulvovaginal erythema [None]
  - Pruritus generalised [None]

NARRATIVE: CASE EVENT DATE: 20160901
